FAERS Safety Report 8309583-2 (Version None)
Quarter: 2012Q2

REPORT INFORMATION
  Report Type: 
  Country: None (occurrence: None)
  Receive Date: 20120420
  Receipt Date: 20120412
  Transmission Date: 20120825
  Serious: Yes (Life-Threatening, Hospitalization)
  Sender: FDA-Public Use
  Company Number: 2012SP019261

PATIENT
  Age: 48 Year
  Sex: Female

DRUGS (5)
  1. ACETAMINOPHEN [Concomitant]
  2. LOVENOX [Concomitant]
  3. NEXIUM [Concomitant]
  4. TEMODAL [Suspect]
     Indication: GLIOMA
     Dosage: 300 MG;QD;PO
     Route: 048
     Dates: start: 20080701, end: 20120101
  5. KEPPRA [Concomitant]

REACTIONS (5)
  - PLEURAL EFFUSION [None]
  - METASTATIC BRONCHIAL CARCINOMA [None]
  - CHEST PAIN [None]
  - DYSPNOEA EXERTIONAL [None]
  - LUNG CARCINOMA CELL TYPE UNSPECIFIED STAGE IV [None]
